FAERS Safety Report 13115569 (Version 8)
Quarter: 2017Q3

REPORT INFORMATION
  Report Type: Spontaneous
  Country: US (occurrence: US)
  Receive Date: 20170114
  Receipt Date: 20170810
  Transmission Date: 20171127
  Serious: Yes (Other)
  Sender: FDA-Public Use
  Company Number: PHEH2017US001481

PATIENT
  Age: 25 Year
  Sex: Female
  Weight: 56.69 kg

DRUGS (2)
  1. ZOFRAN ODT [Suspect]
     Active Substance: ONDANSETRON HYDROCHLORIDE
     Indication: VOMITING IN PREGNANCY
     Dosage: 4 MG, QD
     Route: 048
     Dates: start: 20130815
  2. ZOFRAN [Suspect]
     Active Substance: ONDANSETRON HYDROCHLORIDE
     Indication: VOMITING IN PREGNANCY
     Dosage: 8 MG, QD
     Route: 042
     Dates: start: 20130806

REACTIONS (5)
  - Maternal exposure during pregnancy [Unknown]
  - Injury [Unknown]
  - Product use in unapproved indication [Unknown]
  - Premature delivery [Unknown]
  - Premature rupture of membranes [Unknown]

NARRATIVE: CASE EVENT DATE: 20131208
